FAERS Safety Report 23840282 (Version 1)
Quarter: 2024Q2

REPORT INFORMATION
  Report Type: Spontaneous
  Country: FR (occurrence: FR)
  Receive Date: 20240510
  Receipt Date: 20240510
  Transmission Date: 20240716
  Serious: Yes (Other)
  Sender: FDA-Public Use
  Company Number: FR-AFSSAPS-RN2024000148

PATIENT
  Age: 16 Year
  Sex: Female

DRUGS (2)
  1. SERTRALINE [Suspect]
     Active Substance: SERTRALINE HYDROCHLORIDE
     Indication: Product used for unknown indication
     Dosage: 28 CAPSULES OF 50 MG
     Route: 048
     Dates: start: 20240128, end: 20240128
  2. MELATONIN [Suspect]
     Active Substance: MELATONIN
     Indication: Product used for unknown indication
     Dosage: 20 CAPSULES, UNK
     Route: 048
     Dates: start: 20240128, end: 20240128

REACTIONS (5)
  - Tremor [Recovered/Resolved]
  - Nausea [Recovered/Resolved]
  - Intentional overdose [Recovered/Resolved]
  - Vomiting [Recovered/Resolved]
  - Vertigo [Recovered/Resolved]

NARRATIVE: CASE EVENT DATE: 20240128
